FAERS Safety Report 8845801 (Version 1)
Quarter: 2012Q4

REPORT INFORMATION
  Report Type: 
  Country: DK (occurrence: DK)
  Receive Date: 20121017
  Receipt Date: 20121017
  Transmission Date: 20130627
  Serious: Yes (Disabling)
  Sender: FDA-Public Use
  Company Number: DK-NAPPMUNDI-GBR-2012-0011305

PATIENT
  Age: 61 Year
  Sex: Female

DRUGS (1)
  1. OXYCONTIN [Suspect]
     Indication: PRODUCT USED FOR UNKNOWN INDICATION
     Dosage: 10 mg, bid
     Route: 065
     Dates: start: 20110512

REACTIONS (3)
  - Environmental exposure [Recovering/Resolving]
  - Dermatitis allergic [Recovering/Resolving]
  - Pain [Recovering/Resolving]
